FAERS Safety Report 10082551 (Version 1)
Quarter: 2014Q2

REPORT INFORMATION
  Report Type: Spontaneous
  Country: US (occurrence: US)
  Receive Date: 20140416
  Receipt Date: 20140416
  Transmission Date: 20141212
  Serious: No
  Sender: FDA-Public Use
  Company Number: US-MALLINCKRODT-T201305129

PATIENT
  Age: 7 Year
  Sex: Male
  Weight: 23.58 kg

DRUGS (2)
  1. METHYLIN [Suspect]
     Indication: ATTENTION DEFICIT/HYPERACTIVITY DISORDER
     Dosage: UNK, QID
     Route: 048
     Dates: start: 20131204
  2. KAPVAY [Concomitant]
     Indication: INSOMNIA
     Dosage: 1 MG, 2 TABLETS AT BEDTIME
     Route: 048

REACTIONS (2)
  - Anxiety [Not Recovered/Not Resolved]
  - Drug ineffective [Not Recovered/Not Resolved]
